FAERS Safety Report 12338923 (Version 1)
Quarter: 2016Q2

REPORT INFORMATION
  Report Type: Spontaneous
  Country: US (occurrence: US)
  Receive Date: 20160505
  Receipt Date: 20160505
  Transmission Date: 20160815
  Serious: Yes (Life-Threatening, Hospitalization)
  Sender: FDA-Public Use
  Company Number: US-PFIZER INC-2016242336

PATIENT
  Age: 60 Year
  Sex: Female

DRUGS (1)
  1. PROCAINE BENZYLPENICILLIN [Suspect]
     Active Substance: PENICILLIN G PROCAINE
     Indication: OROPHARYNGEAL PAIN
     Dosage: UNK (300,000 UNITS )
     Route: 030

REACTIONS (5)
  - Loss of consciousness [Recovered/Resolved]
  - Anaphylactic shock [Recovered/Resolved]
  - Asthma [Recovered/Resolved]
  - Pruritus generalised [Recovered/Resolved]
  - Dyspnoea [Recovered/Resolved]

NARRATIVE: CASE EVENT DATE: 19540418
